FAERS Safety Report 7077535-9 (Version None)
Quarter: 2010Q4

REPORT INFORMATION
  Report Type: 
  Country: None (occurrence: None)
  Receive Date: 20101101
  Receipt Date: 20101020
  Transmission Date: 20110411
  Serious: No
  Sender: FDA-Public Use
  Company Number: DE-ELI_LILLY_AND_COMPANY-DE201006005692

PATIENT
  Age: 68 Year
  Sex: Female

DRUGS (2)
  1. EFFIENT [Suspect]
     Indication: ACUTE CORONARY SYNDROME
     Dosage: 60 MG, UNK
     Route: 048
  2. EFFIENT [Suspect]
     Dosage: 10 MG, UNK
     Route: 048

REACTIONS (1)
  - NO ADVERSE EVENT [None]
